FAERS Safety Report 24008937 (Version 1)
Quarter: 2024Q2

REPORT INFORMATION
  Report Type: Spontaneous
  Country: US (occurrence: US)
  Receive Date: 20240625
  Receipt Date: 20240625
  Transmission Date: 20240715
  Serious: Yes (Other)
  Sender: FDA-Public Use
  Company Number: US-009507513-2406USA007203

PATIENT

DRUGS (1)
  1. KEYTRUDA [Suspect]
     Active Substance: PEMBROLIZUMAB
     Indication: Squamous cell carcinoma of skin
     Dosage: 400 MG INTRAVENOUS EVERY 6 WEEKS
     Route: 042

REACTIONS (1)
  - Immune-mediated myocarditis [Unknown]
